FAERS Safety Report 7682825-2 (Version None)
Quarter: 2011Q3

REPORT INFORMATION
  Report Type: 
  Country: None (occurrence: None)
  Receive Date: 20110815
  Receipt Date: 20110804
  Transmission Date: 20111222
  Serious: Yes (Other)
  Sender: FDA-Public Use
  Company Number: US-ROCHE-786658

PATIENT
  Sex: Male
  Weight: 74.8 kg

DRUGS (1)
  1. ACCUTANE [Suspect]
     Indication: ACNE
     Route: 048
     Dates: start: 19840401, end: 19870801

REACTIONS (8)
  - INJURY [None]
  - DEPRESSION [None]
  - COLITIS ULCERATIVE [None]
  - CHEST PAIN [None]
  - VISUAL IMPAIRMENT [None]
  - PERIRECTAL ABSCESS [None]
  - PANIC ATTACK [None]
  - INFLAMMATORY BOWEL DISEASE [None]
